FAERS Safety Report 9855178 (Version 1)
Quarter: 2014Q1

REPORT INFORMATION
  Report Type: Spontaneous
  Country: GB (occurrence: GB)
  Receive Date: 20140130
  Receipt Date: 20140130
  Transmission Date: 20141002
  Serious: Yes (Other)
  Sender: FDA-Public Use
  Company Number: GB-PFIZER INC-2014023922

PATIENT
  Age: 4 Year
  Sex: Male

DRUGS (8)
  1. CYCLOPHOSPHAMIDE [Suspect]
     Indication: NON-HODGKIN^S LYMPHOMA STAGE III
  2. CYTARABINE [Suspect]
     Indication: NON-HODGKIN^S LYMPHOMA STAGE III
  3. DOXORUBICIN [Suspect]
     Indication: NON-HODGKIN^S LYMPHOMA STAGE III
  4. METHOTREXATE SODIUM [Suspect]
     Indication: NON-HODGKIN^S LYMPHOMA STAGE III
  5. VINCRISTINE [Suspect]
     Indication: NON-HODGKIN^S LYMPHOMA STAGE III
  6. PREDNISONE [Suspect]
     Indication: NON-HODGKIN^S LYMPHOMA STAGE III
  7. LEUCOVORIN [Suspect]
     Indication: NON-HODGKIN^S LYMPHOMA STAGE III
  8. HYDROCORTISONE [Suspect]
     Indication: NON-HODGKIN^S LYMPHOMA STAGE III

REACTIONS (1)
  - Ileal stenosis [Recovered/Resolved]
